FAERS Safety Report 6541328-9 (Version None)
Quarter: 2010Q1

REPORT INFORMATION
  Report Type: 
  Country: None (occurrence: None)
  Receive Date: 20100118
  Receipt Date: 20091105
  Transmission Date: 20100710
  Serious: No
  Sender: FDA-Public Use
  Company Number: US-ALLERGAN-0912595US

PATIENT
  Age: 66 Year
  Sex: Female

DRUGS (3)
  1. LATISSE [Suspect]
     Indication: GROWTH OF EYELASHES
     Dosage: 1 GTT, QHS
     Route: 061
     Dates: start: 20090420
  2. LATISSE [Suspect]
     Dosage: UNK
     Route: 061
  3. LATISSE [Suspect]
     Dosage: UNK
     Route: 061

REACTIONS (2)
  - DRUG INEFFECTIVE [None]
  - PRODUCT CONTAINER ISSUE [None]
